FAERS Safety Report 16571776 (Version 1)
Quarter: 2019Q3

REPORT INFORMATION
  Report Type: Spontaneous
  Country: US (occurrence: US)
  Receive Date: 20190714
  Receipt Date: 20190714
  Transmission Date: 20191004
  Serious: Yes (Hospitalization)
  Sender: FDA-Public Use
  Company Number: None

PATIENT
  Age: 48 Year
  Sex: Male
  Weight: 138 kg

DRUGS (11)
  1. MULTIVITAMIN [Concomitant]
     Active Substance: VITAMINS
  2. INSULIN DETEMIR [Suspect]
     Active Substance: INSULIN DETEMIR
     Indication: DIABETES MELLITUS
     Route: 058
  3. FUROSEMIDE. [Concomitant]
     Active Substance: FUROSEMIDE
  4. EMPAGLIFLOZIN [Concomitant]
     Active Substance: EMPAGLIFLOZIN
  5. INSULIN ASPART [Concomitant]
     Active Substance: INSULIN ASPART
  6. SAXAGLIPTON [Concomitant]
  7. FISHOIL [Concomitant]
  8. FENOFIBRATE. [Concomitant]
     Active Substance: FENOFIBRATE
  9. BACLOFEN. [Concomitant]
     Active Substance: BACLOFEN
  10. NIACIN. [Concomitant]
     Active Substance: NIACIN
  11. ASPIRIN. [Concomitant]
     Active Substance: ASPIRIN

REACTIONS (10)
  - Pain in extremity [None]
  - Oedema peripheral [None]
  - Hypoaesthesia [None]
  - Gait inability [None]
  - Peripheral swelling [None]
  - Fluid retention [None]
  - Tenderness [None]
  - Urinary hesitation [None]
  - Paraesthesia [None]
  - Peripheral coldness [None]

NARRATIVE: CASE EVENT DATE: 20190711
